FAERS Safety Report 6560591-1 (Version None)
Quarter: 2010Q1

REPORT INFORMATION
  Report Type: 
  Country: None (occurrence: None)
  Receive Date: 20100129
  Receipt Date: 20050317
  Transmission Date: 20100710
  Serious: No
  Sender: FDA-Public Use
  Company Number: US-ALLERGAN-200502260

PATIENT
  Age: 67 Year
  Sex: Male

DRUGS (1)
  1. BOTOX COSMETIC [Suspect]
     Indication: SKIN WRINKLING
     Dosage: CROWS FEET, GLABELLA, CHEEK BONES
     Route: 030
     Dates: start: 20040801

REACTIONS (3)
  - DEPRESSION [None]
  - FACIAL PALSY [None]
  - FACIAL PARESIS [None]
